FAERS Safety Report 4900279-3 (Version None)
Quarter: 2006Q1

REPORT INFORMATION
  Report Type: 
  Country: None (occurrence: None)
  Receive Date: 20060203
  Receipt Date: 20060118
  Transmission Date: 20060701
  Serious: Yes (Hospitalization)
  Sender: FDA-Public Use
  Company Number: JP-ROCHE-432913

PATIENT
  Age: 44 Year
  Sex: Male

DRUGS (2)
  1. TAMIFLU [Suspect]
     Route: 048
     Dates: start: 20060112, end: 20060116
  2. DOGMATYL [Concomitant]
     Dosage: FORM REPORTED AS ORAL FORMULATION
     Route: 048
     Dates: start: 20060116

REACTIONS (3)
  - DEPRESSED LEVEL OF CONSCIOUSNESS [None]
  - DEPRESSION [None]
  - HALLUCINATION [None]
